FAERS Safety Report 25730244 (Version 1)
Quarter: 2025Q3

REPORT INFORMATION
  Report Type: Spontaneous
  Country: US (occurrence: None)
  Receive Date: 20250826
  Receipt Date: 20250826
  Transmission Date: 20251021
  Serious: Yes (Death)
  Sender: FDA-CTU
  Company Number: None

PATIENT
  Age: 61 Year
  Sex: Male

DRUGS (1)
  1. XIFAXAN [Suspect]
     Active Substance: RIFAXIMIN
     Dosage: FREQUENCY : TWICE A DAY;?
     Route: 048
     Dates: start: 20250603

REACTIONS (2)
  - Myocardial infarction [None]
  - Pneumonia [None]
